FAERS Safety Report 4376240-7 (Version None)
Quarter: 2004Q2

REPORT INFORMATION
  Report Type: 
  Country: None (occurrence: None)
  Receive Date: 20040611
  Receipt Date: 20040507
  Transmission Date: 20050107
  Serious: Yes (Hospitalization)
  Sender: FDA-Public Use
  Company Number: JP-MERCK-0405USA00649

PATIENT
  Age: 39 Year
  Sex: Male

DRUGS (8)
  1. CRIXIVAN [Suspect]
     Indication: HIV INFECTION
     Route: 048
     Dates: start: 19990429, end: 19991210
  2. CRIXIVAN [Suspect]
     Route: 048
     Dates: start: 20000101
  3. LAMIVUDINE [Suspect]
     Indication: HIV INFECTION
     Route: 048
     Dates: start: 19990429, end: 19991210
  4. LAMIVUDINE [Suspect]
     Route: 048
     Dates: start: 20000101
  5. STAVUDINE [Suspect]
     Indication: HIV INFECTION
     Route: 048
     Dates: start: 19990429, end: 19991210
  6. STAVUDINE [Suspect]
     Route: 048
     Dates: start: 20000101
  7. SULFAMETHOXAZOLE AND TRIMETHOPRIM [Suspect]
     Indication: PNEUMOCYSTIS CARINII PNEUMONIA
     Route: 048
     Dates: start: 19990429
  8. SULFAMETHOXAZOLE AND TRIMETHOPRIM [Suspect]
     Indication: PROPHYLAXIS
     Route: 048
     Dates: start: 19990429

REACTIONS (2)
  - IMMUNE RECONSTITUTION SYNDROME [None]
  - PNEUMOCYSTIS CARINII PNEUMONIA [None]
